FAERS Safety Report 8435217-2 (Version None)
Quarter: 2012Q2

REPORT INFORMATION
  Report Type: 
  Country: None (occurrence: None)
  Receive Date: 20120614
  Receipt Date: 20120607
  Transmission Date: 20120825
  Serious: Yes (Hospitalization, Other)
  Sender: FDA-Public Use
  Company Number: JP-ASTELLAS-2012JP004459

PATIENT
  Sex: Male
  Weight: 71.5 kg

DRUGS (15)
  1. TACROLIMUS [Suspect]
     Indication: MYASTHENIA GRAVIS
     Dosage: 3 MG, UNKNOWN/D
     Route: 048
     Dates: start: 20120501, end: 20120518
  2. NATEGLINIDE [Concomitant]
     Indication: DIABETES MELLITUS
     Dosage: 270 MG, UNKNOWN/D
     Route: 048
  3. MESTINON [Concomitant]
     Indication: MYASTHENIA GRAVIS
     Dosage: 120 MG, UNKNOWN/D
     Route: 048
  4. PREDNISOLONE [Concomitant]
     Indication: MYASTHENIA GRAVIS
     Dosage: 12.5 MG, UNKNOWN/D
     Route: 048
     Dates: end: 20120405
  5. PREDNISOLONE [Concomitant]
     Dosage: 25 MG, UNKNOWN/D
     Route: 048
     Dates: start: 20120420, end: 20120423
  6. LANSOPRAZOLE [Concomitant]
     Indication: PROPHYLAXIS
     Dosage: 15 MG, UNKNOWN/D
     Route: 048
  7. NOVORAPID [Concomitant]
     Dosage: UNK
     Route: 065
     Dates: start: 20120427
  8. PREDNISOLONE [Concomitant]
     Dosage: 30 MG, UNKNOWN/D
     Route: 048
     Dates: start: 20120424
  9. LIPITOR [Concomitant]
     Indication: HYPERLIPIDAEMIA
     Dosage: 10 MG, UID/QD
     Route: 048
  10. PREDNISOLONE [Concomitant]
     Dosage: 15 MG, UNKNOWN/D
     Route: 048
     Dates: start: 20120406, end: 20120412
  11. PREDNISOLONE [Concomitant]
     Dosage: 20 MG, UNKNOWN/D
     Route: 048
     Dates: start: 20120413, end: 20120419
  12. VOGLIBOSE [Concomitant]
     Dosage: 0.6 MG, UNKNOWN/D
     Route: 048
  13. ADALAT CC [Concomitant]
     Dosage: 40 MG, UNKNOWN/D
     Route: 048
  14. COTRIM [Concomitant]
     Indication: PROPHYLAXIS
     Dosage: 1 DF, UNKNOWN/D
     Route: 048
     Dates: start: 20120509
  15. CANDESARTAN CILEXETIL [Concomitant]
     Dosage: 4 MG, UNKNOWN/D
     Route: 048

REACTIONS (2)
  - RENAL DISORDER [None]
  - TREMOR [None]
